FAERS Safety Report 5508781-0 (Version None)
Quarter: 2007Q4

REPORT INFORMATION
  Report Type: 
  Country: None (occurrence: None)
  Receive Date: 20071107
  Receipt Date: 20071102
  Transmission Date: 20080405
  Serious: Yes (Congenital Anomaly)
  Sender: FDA-Public Use
  Company Number: B0492627A

PATIENT

DRUGS (7)
  1. PAXIL [Suspect]
     Indication: DRUG USE FOR UNKNOWN INDICATION
     Dosage: 40MG PER DAY
     Dates: start: 20040327, end: 20041227
  2. LORAZEPAM [Concomitant]
  3. DEPAS [Concomitant]
  4. NAUZELIN [Concomitant]
  5. LULLAN [Concomitant]
  6. SERENACE [Concomitant]
  7. AKINETON [Concomitant]

REACTIONS (3)
  - ABASIA [None]
  - DRUG EXPOSURE DURING PREGNANCY [None]
  - LIMB MALFORMATION [None]
